FAERS Safety Report 6007185-4 (Version None)
Quarter: 2008Q4

REPORT INFORMATION
  Report Type: 
  Country: None (occurrence: None)
  Receive Date: 20081217
  Receipt Date: 20080222
  Transmission Date: 20090506
  Serious: No
  Sender: FDA-Public Use
  Company Number: US-ASTRAZENECA-2008UW03808

PATIENT
  Age: 50 Year
  Sex: Female
  Weight: 63.5 kg

DRUGS (5)
  1. CRESTOR [Suspect]
     Indication: BLOOD CHOLESTEROL
     Route: 048
     Dates: start: 20080219
  2. SYNTHROID [Concomitant]
  3. ADVAIR DISKUS 250/50 [Concomitant]
  4. ESTROGENIC SUBSTANCE [Concomitant]
  5. COMBIVENT [Concomitant]

REACTIONS (2)
  - ABNORMAL DREAMS [None]
  - INSOMNIA [None]
